FAERS Safety Report 4654720-4 (Version None)
Quarter: 2005Q2

REPORT INFORMATION
  Report Type: 
  Country: None (occurrence: None)
  Receive Date: 20050506
  Receipt Date: 20050203
  Transmission Date: 20051028
  Serious: Yes (Disabling, Other)
  Sender: FDA-Public Use
  Company Number: 200510909US

PATIENT
  Sex: Male

DRUGS (2)
  1. KETEK [Suspect]
     Indication: BRONCHITIS
     Route: 048
     Dates: start: 20040920, end: 20040927
  2. KETEK [Suspect]
     Indication: SINUSITIS
     Route: 048
     Dates: start: 20040920, end: 20040927

REACTIONS (2)
  - CATARACT [None]
  - VISION BLURRED [None]
